FAERS Safety Report 8501579-0 (Version None)
Quarter: 2012Q3

REPORT INFORMATION
  Report Type: 
  Country: None (occurrence: None)
  Receive Date: 20120710
  Receipt Date: 20120625
  Transmission Date: 20120928
  Serious: Yes (Other)
  Sender: FDA-Public Use
  Company Number: ES-WATSON-2012-11868

PATIENT
  Age: 45 Year
  Sex: Male

DRUGS (2)
  1. FENTANYL-100 [Suspect]
     Indication: BREAKTHROUGH PAIN
     Dosage: 3 PATCHES
     Route: 062
  2. FENTANYL CITRATE [Suspect]
     Indication: BREAKTHROUGH PAIN
     Dosage: 1200 MCG AS NEEDED
     Route: 002

REACTIONS (3)
  - OVERDOSE [None]
  - DEPENDENCE [None]
  - DRUG ABUSE [None]
